FAERS Safety Report 5791558 (Version 2)
Quarter: 2018Q3

REPORT INFORMATION
  Report Type: Spontaneous
  Country: CA (occurrence: CA)
  Receive Date: 20050509
  Receipt Date: 20180830
  Transmission Date: 20181010
  Serious: Yes (Hospitalization)
  Sender: FDA-Public Use
  Company Number: CA-JNJFOC-20050405988

PATIENT
  Sex: Female

DRUGS (2)
  1. IMODIUM A?D [Suspect]
     Active Substance: LOPERAMIDE HYDROCHLORIDE
     Route: 048
  2. IMODIUM A?D [Suspect]
     Active Substance: LOPERAMIDE HYDROCHLORIDE
     Indication: DIARRHOEA
     Route: 048
     Dates: start: 20050416, end: 20050421

REACTIONS (6)
  - Gastrointestinal disorder [Unknown]
  - Dry mouth [Unknown]
  - Drug ineffective [Unknown]
  - Nausea [Unknown]
  - Pollakiuria [Unknown]
  - Confusional state [Unknown]

NARRATIVE: CASE EVENT DATE: 200504
